FAERS Safety Report 7036088-1 (Version None)
Quarter: 2010Q4

REPORT INFORMATION
  Report Type: 
  Country: None (occurrence: None)
  Receive Date: 20101008
  Receipt Date: 20090826
  Transmission Date: 20110411
  Serious: No
  Sender: FDA-Public Use
  Company Number: US-BRISTOL-MYERS SQUIBB COMPANY-14741508

PATIENT
  Age: 69 Year
  Sex: Male
  Weight: 102 kg

DRUGS (6)
  1. AVAPRO [Suspect]
     Indication: HYPERTENSION
     Route: 048
     Dates: start: 20090101
  2. COREG [Concomitant]
  3. LASIX [Concomitant]
  4. XANAX [Concomitant]
  5. ALLOPURINOL [Concomitant]
  6. COLCHICINE [Concomitant]

REACTIONS (1)
  - SLEEP DISORDER [None]
